FAERS Safety Report 15357816 (Version 3)
Quarter: 2019Q1

REPORT INFORMATION
  Report Type: Report from Study
  Country: None (occurrence: ES)
  Receive Date: 20180906
  Receipt Date: 20190124
  Transmission Date: 20190417
  Serious: Yes (Life-Threatening, Hospitalization, Disabling, Other)
  Sender: FDA-Public Use
  Company Number: ES-ABBVIE-18P-144-2440294-00

PATIENT
  Age: 44 Year
  Sex: Male
  Weight: 55 kg

DRUGS (7)
  1. HUMIRA [Suspect]
     Active Substance: ADALIMUMAB
     Route: 058
     Dates: start: 20160818, end: 20180702
  2. HUMIRA [Suspect]
     Active Substance: ADALIMUMAB
     Indication: COLITIS ULCERATIVE
     Route: 058
     Dates: start: 20141029, end: 20160209
  3. VIVOMIXX [Concomitant]
     Indication: PROBIOTIC THERAPY
     Dosage: BILLION
     Route: 048
     Dates: start: 20160212
  4. CODEINE PHOSPHATE HEMIHYDRATE [Concomitant]
     Active Substance: CODEINE PHOSPHATE
     Indication: COLITIS ULCERATIVE
     Route: 048
     Dates: start: 20160618
  5. HUMIRA [Suspect]
     Active Substance: ADALIMUMAB
     Route: 058
     Dates: start: 20160210, end: 20160212
  6. HUMIRA [Suspect]
     Active Substance: ADALIMUMAB
     Route: 058
     Dates: start: 20160603, end: 20160803
  7. CARBOXIMALTOSA IRON [Concomitant]
     Indication: ANAEMIA
     Route: 041
     Dates: start: 20130312

REACTIONS (6)
  - Bile duct stone [Recovered/Resolved]
  - Septic shock [Recovered/Resolved]
  - Renal colic [Not Recovered/Not Resolved]
  - Intestinal perforation [Not Recovered/Not Resolved]
  - Pouchitis [Recovered/Resolved]
  - Anaemia [Recovered/Resolved]

NARRATIVE: CASE EVENT DATE: 20180720
